FAERS Safety Report 5807506-9 (Version None)
Quarter: 2008Q3

REPORT INFORMATION
  Report Type: 
  Country: None (occurrence: None)
  Receive Date: 20080711
  Receipt Date: 20080630
  Transmission Date: 20090109
  Serious: Yes (Death, Hospitalization, Other)
  Sender: FDA-Public Use
  Company Number: ES-GILEAD-2008-0016585

PATIENT
  Sex: Male

DRUGS (3)
  1. VIREAD [Suspect]
     Indication: HIV INFECTION
     Route: 048
     Dates: start: 20030310
  2. STAVUDINE [Concomitant]
     Indication: HIV INFECTION
     Route: 048
     Dates: start: 20030527, end: 20080519
  3. 3TC [Concomitant]
     Indication: HIV INFECTION
     Route: 048
     Dates: start: 20030327, end: 20080519

REACTIONS (4)
  - FANCONI SYNDROME ACQUIRED [None]
  - MITRAL VALVE DISEASE [None]
  - OSTEOMALACIA [None]
  - RENAL TUBULAR ACIDOSIS [None]
